FAERS Safety Report 23803449 (Version 1)
Quarter: 2024Q2

REPORT INFORMATION
  Report Type: Spontaneous
  Country: US (occurrence: None)
  Receive Date: 20240430
  Receipt Date: 20240430
  Transmission Date: 20240716
  Serious: Yes (Death, Hospitalization)
  Sender: FDA-Public Use
  Company Number: None

PATIENT
  Age: 32 Month
  Sex: Male
  Weight: 16 kg

DRUGS (5)
  1. CYCLOPHOSPHAMIDE [Suspect]
     Active Substance: CYCLOPHOSPHAMIDE
     Dates: end: 20240425
  2. ZINECARD [Suspect]
     Active Substance: DEXRAZOXANE HYDROCHLORIDE
     Dates: end: 20240425
  3. DOXORUBICIN HYDROCHLORIDE [Suspect]
     Active Substance: DOXORUBICIN HYDROCHLORIDE
     Dates: end: 20240425
  4. MESNA [Suspect]
     Active Substance: MESNA
     Dates: end: 20240426
  5. VINCRISTINE SULFATE [Suspect]
     Active Substance: VINCRISTINE SULFATE
     Dates: end: 20240404

REACTIONS (11)
  - Abdominal mass [None]
  - Pleural effusion [None]
  - Metastases to lymph nodes [None]
  - Bone cancer metastatic [None]
  - Neuroblastoma [None]
  - Blood creatinine increased [None]
  - Urine output decreased [None]
  - Respiratory distress [None]
  - Abdominal distension [None]
  - Multi-organ disorder [None]
  - Oedema [None]

NARRATIVE: CASE EVENT DATE: 20240427
